FAERS Safety Report 9824571 (Version 1)
Quarter: 2014Q1

REPORT INFORMATION
  Report Type: Spontaneous
  Country: US (occurrence: US)
  Receive Date: 20140117
  Receipt Date: 20140117
  Transmission Date: 20141002
  Serious: No
  Sender: FDA-Public Use
  Company Number: US-GILEAD-2011-0039011

PATIENT
  Age: 58 Year
  Sex: Female

DRUGS (2)
  1. LETAIRIS [Suspect]
     Indication: PRODUCT USED FOR UNKNOWN INDICATION
     Route: 048
     Dates: start: 20101203
  2. ADCIRCA [Concomitant]

REACTIONS (5)
  - Dysarthria [Not Recovered/Not Resolved]
  - Asthenia [Not Recovered/Not Resolved]
  - Increased appetite [Not Recovered/Not Resolved]
  - Anxiety [Not Recovered/Not Resolved]
  - Constipation [Not Recovered/Not Resolved]
